FAERS Safety Report 22141232 (Version 1)
Quarter: 2023Q1

REPORT INFORMATION
  Report Type: Spontaneous
  Country: US (occurrence: None)
  Receive Date: 20230324
  Receipt Date: 20230324
  Transmission Date: 20230417
  Serious: Yes (Hospitalization)
  Sender: FDA-Public Use
  Company Number: None

PATIENT
  Sex: Female

DRUGS (1)
  1. DEFERASIROX [Suspect]
     Active Substance: DEFERASIROX
     Indication: Sickle cell anaemia with crisis
     Dosage: 180MG ONCE DAILY BY MOUTH?
     Route: 048
     Dates: start: 20201019

REACTIONS (2)
  - Sickle cell anaemia with crisis [None]
  - Pain [None]
